FAERS Safety Report 18598184 (Version 1)
Quarter: 2020Q4

REPORT INFORMATION
  Report Type: Spontaneous
  Country: DE (occurrence: DE)
  Receive Date: 20201210
  Receipt Date: 20201210
  Transmission Date: 20210114
  Serious: Yes (Other)
  Sender: FDA-Public Use
  Company Number: DE-AMGEN-DEUSP2020103477

PATIENT
  Age: 51 Year
  Sex: Female

DRUGS (6)
  1. CLIOQUINOL [Concomitant]
     Active Substance: CLIOQUINOL
     Indication: SKIN LESION
     Dosage: UNK (ONCE TO TWICE DAILY IN THE MIDDLE OF MAY)
     Route: 065
  2. GENTAMYCINE [GENTAMICIN] [Concomitant]
     Indication: SKIN LESION
     Dosage: UNK (TWICE DAILY WAS INITIATED)
     Route: 065
  3. TRIAMCINOLONE [Concomitant]
     Active Substance: TRIAMCINOLONE
     Indication: SKIN LESION
     Dosage: UNK (ONCE TO TWICE DAILY IN THE MIDDLE OF MAY)
     Route: 065
  4. OPIPRAMOL [Concomitant]
     Active Substance: OPIPRAMOL
     Indication: SLEEP DISORDER
     Dosage: 50 MILLIGRAM
     Route: 065
     Dates: start: 2017
  5. ERENUMAB [Suspect]
     Active Substance: ERENUMAB
     Indication: MIGRAINE
     Dosage: 70 MILLIGRAM, Q4WK
     Route: 058
     Dates: start: 201811, end: 20190502
  6. BETAMETHASONE. [Concomitant]
     Active Substance: BETAMETHASONE
     Indication: SKIN LESION
     Dosage: UNK (TWICE DAILY WAS INITIATED)
     Route: 065

REACTIONS (2)
  - Necrosis [Recovering/Resolving]
  - Impaired healing [Recovered/Resolved]
